FAERS Safety Report 23499094 (Version 2)
Quarter: 2024Q1

REPORT INFORMATION
  Report Type: Spontaneous
  Country: US (occurrence: US)
  Receive Date: 20240208
  Receipt Date: 20240212
  Transmission Date: 20240410
  Serious: Yes (Hospitalization)
  Sender: FDA-Public Use
  Company Number: US-ABBVIE-5625882

PATIENT
  Age: 86 Year
  Sex: Male

DRUGS (3)
  1. MEMANTINE [Suspect]
     Active Substance: MEMANTINE
     Indication: Dementia Alzheimer^s type
     Route: 048
  2. METOPROLOL SUCCINATE [Concomitant]
     Active Substance: METOPROLOL SUCCINATE
     Indication: Hypertension
     Route: 065
  3. MECLIZINE [Concomitant]
     Active Substance: MECLIZINE HYDROCHLORIDE
     Indication: Dizziness
     Dosage: 12.5 MG EVERY 8 HR AS NEEDED
     Route: 065

REACTIONS (6)
  - Behaviour disorder [Recovered/Resolved]
  - Hypertensive crisis [Recovered/Resolved]
  - Echolalia [Recovered/Resolved]
  - Product name confusion [Unknown]
  - Overdose [Recovered/Resolved]
  - Wrong product administered [Unknown]
